FAERS Safety Report 17902805 (Version 2)
Quarter: 2020Q4

REPORT INFORMATION
  Report Type: Spontaneous
  Country: US (occurrence: US)
  Receive Date: 20200616
  Receipt Date: 20201009
  Transmission Date: 20210113
  Serious: Yes (Life-Threatening, Disabling, Other)
  Sender: FDA-Public Use
  Company Number: US-PFIZER INC-2020138317

PATIENT
  Age: 63 Year
  Sex: Female

DRUGS (2)
  1. LYRICA [Suspect]
     Active Substance: PREGABALIN
     Indication: BACK PAIN
     Dosage: 50 MG, 2X/DAY
     Route: 048
  2. LYRICA [Suspect]
     Active Substance: PREGABALIN
     Indication: ARTHRALGIA

REACTIONS (10)
  - Overweight [Not Recovered/Not Resolved]
  - Pruritus [Recovering/Resolving]
  - Lymphoedema [Recovered/Resolved]
  - Skin disorder [Not Recovered/Not Resolved]
  - Weight increased [Not Recovered/Not Resolved]
  - Therapeutic product effect incomplete [Unknown]
  - Somnolence [Recovering/Resolving]
  - Skin discolouration [Recovering/Resolving]
  - Breast cancer female [Recovered/Resolved]
  - Scar [Not Recovered/Not Resolved]

NARRATIVE: CASE EVENT DATE: 202001
